FAERS Safety Report 14580580 (Version 6)
Quarter: 2018Q2

REPORT INFORMATION
  Report Type: Report from Study
  Country: CZ (occurrence: CZ)
  Receive Date: 20180228
  Receipt Date: 20180509
  Transmission Date: 20180711
  Serious: Yes (Life-Threatening, Hospitalization, Disabling)
  Sender: FDA-Public Use
  Company Number: CZ-ROCHE-2075890

PATIENT
  Age: 48 Year
  Sex: Female
  Weight: 63 kg

DRUGS (32)
  1. OCRELIZUMAB. [Suspect]
     Active Substance: OCRELIZUMAB
     Dosage: 17/JUL/2014 (OLE-WEEK 24), 05/JAN/2015 (OLE-WEEK 48), 18/JUN/2015 (OLE-WEEK 72), 10/DEC/2015 (OLE-WE
     Route: 042
  2. SOLU-MEDROL [Suspect]
     Active Substance: METHYLPREDNISOLONE SODIUM SUCCINATE
     Indication: MULTIPLE SCLEROSIS RELAPSE
     Route: 065
     Dates: start: 20180207
  3. SOLU-MEDROL [Suspect]
     Active Substance: METHYLPREDNISOLONE SODIUM SUCCINATE
     Route: 065
     Dates: start: 20180205, end: 20180208
  4. ENDOXAN [Suspect]
     Active Substance: CYCLOPHOSPHAMIDE
     Indication: MULTIPLE SCLEROSIS RELAPSE
     Route: 065
     Dates: start: 20180207
  5. PARALEN (CZECH REPUBLIC) [Concomitant]
     Dosage: 15/MAR/2012 BASELINE (WEEK 1), 29/MAR/2012 (WEEK 2), 30/AUG/2012 (WEEK 24), 14/FEB/2013 (WEEK 48), 0
     Route: 065
     Dates: start: 20120315
  6. ZARZIO [Concomitant]
     Active Substance: FILGRASTIM
     Route: 065
     Dates: start: 20180214, end: 20180214
  7. INTERFERON BETA-1A [Suspect]
     Active Substance: INTERFERON BETA-1A
     Indication: RELAPSING-REMITTING MULTIPLE SCLEROSIS
     Dosage: 16/JAN/2014, 29/JAN/2014
     Route: 058
     Dates: start: 20120315
  8. AZITROMYCIN [Concomitant]
     Active Substance: AZITHROMYCIN ANHYDROUS
     Route: 065
     Dates: start: 20170913
  9. PREDNISON [Concomitant]
     Active Substance: PREDNISONE
     Route: 065
     Dates: start: 20180118, end: 20180127
  10. COMBAIR (CZECH REPUBLIC) [Concomitant]
     Route: 065
     Dates: start: 20171220, end: 20180110
  11. PLACEBO [Suspect]
     Active Substance: UNSPECIFIED INGREDIENT
     Indication: RELAPSING-REMITTING MULTIPLE SCLEROSIS
     Dosage: 29/MAR/2012 (WEEK 2), 30/AUG/2012 (WEEK 24), 14/FEB/2013 (WEEK 48), 01/AUG/2013 (WEEK 72)?SPLIT INFU
     Route: 042
     Dates: start: 20120315
  12. PARALEN (CZECH REPUBLIC) [Concomitant]
     Route: 065
     Dates: start: 20120509, end: 20120515
  13. SOLU-MEDROL [Suspect]
     Active Substance: METHYLPREDNISOLONE SODIUM SUCCINATE
     Route: 065
     Dates: start: 20180128, end: 20180202
  14. METHYLPREDNISOLONE. [Concomitant]
     Active Substance: METHYLPREDNISOLONE
     Dosage: 15/MAR/2012 BASELINE (WEEK 1), 29/MAR/2012 (WEEK 2), 30/AUG/2012 (WEEK 24), 14/FEB/2013 (WEEK 48), 0
     Route: 065
     Dates: start: 20120315
  15. CIPRALEX [Concomitant]
     Active Substance: ESCITALOPRAM OXALATE
     Route: 065
     Dates: start: 20170104
  16. MILGAMMA N (CZECH REPUBLIC) [Concomitant]
     Dosage: 1 AMPULE
     Route: 065
     Dates: start: 20180118, end: 20180126
  17. AVELOX [Concomitant]
     Active Substance: MOXIFLOXACIN HYDROCHLORIDE
     Route: 065
     Dates: start: 20180217, end: 20180303
  18. OCRELIZUMAB. [Suspect]
     Active Substance: OCRELIZUMAB
     Indication: RELAPSING-REMITTING MULTIPLE SCLEROSIS
     Dosage: 27/FEB/2014 (OLE-WEEK 2). TWO 300 MG INFUSION ON DAYS 1 AND 15 OF CYCLE 1, FOLLOWED BY 600 MG ON DAY
     Route: 042
     Dates: start: 20140130
  19. ENDOXAN [Suspect]
     Active Substance: CYCLOPHOSPHAMIDE
     Route: 065
  20. ZODAC [Concomitant]
     Active Substance: CETIRIZINE HYDROCHLORIDE
     Dosage: BASELINE (WEEK 1), 29/MAR/2012 (WEEK 2), 30/AUG/2012 (WEEK 24), 14/FEB/2013 (WEEK 48), 01/AUG/2013 (
     Route: 065
     Dates: start: 20120315
  21. METHYLPREDNISOLONE. [Concomitant]
     Active Substance: METHYLPREDNISOLONE
     Route: 065
     Dates: start: 20111011, end: 20111016
  22. LETROX [Concomitant]
     Active Substance: LEVOTHYROXINE SODIUM
     Route: 065
     Dates: start: 20170901
  23. FLONIDAN [Concomitant]
     Active Substance: LORATADINE
     Route: 065
     Dates: start: 20171207, end: 20180125
  24. KLACID [Concomitant]
     Active Substance: CLARITHROMYCIN
     Route: 065
     Dates: start: 20171220, end: 20171226
  25. XADOS [Concomitant]
     Route: 065
     Dates: start: 20171220, end: 20180110
  26. METHYLPREDNISOLONE. [Concomitant]
     Active Substance: METHYLPREDNISOLONE
     Route: 065
     Dates: start: 20110822, end: 20110827
  27. FRAXIPARINE [Concomitant]
     Active Substance: NADROPARIN CALCIUM
     Route: 065
     Dates: start: 20180128, end: 20180314
  28. LETROX [Concomitant]
     Active Substance: LEVOTHYROXINE SODIUM
     Route: 065
     Dates: start: 2005, end: 20170831
  29. AZITROMYCIN [Concomitant]
     Active Substance: AZITHROMYCIN ANHYDROUS
     Route: 065
     Dates: start: 20151202, end: 20151204
  30. AZITROMYCIN [Concomitant]
     Active Substance: AZITHROMYCIN ANHYDROUS
     Route: 065
     Dates: start: 20170125, end: 20170127
  31. HELICID [Concomitant]
     Active Substance: OMEPRAZOLE
     Route: 065
     Dates: start: 20180128, end: 20180208
  32. KLACID [Concomitant]
     Active Substance: CLARITHROMYCIN
     Route: 065
     Dates: start: 20140324, end: 20140330

REACTIONS (3)
  - Pneumonia [Recovered/Resolved]
  - Leukopenia [Recovered/Resolved]
  - Multiple sclerosis relapse [Recovered/Resolved]

NARRATIVE: CASE EVENT DATE: 20180128
